FAERS Safety Report 18234062 (Version 1)
Quarter: 2020Q3

REPORT INFORMATION
  Report Type: Spontaneous
  Country: US (occurrence: US)
  Receive Date: 20200904
  Receipt Date: 20200904
  Transmission Date: 20201103
  Serious: Yes (Hospitalization)
  Sender: FDA-Public Use
  Company Number: US-PAIPHARMA-2020-US-015719

PATIENT
  Age: 4 Week
  Sex: Male
  Weight: 3.53 kg

DRUGS (3)
  1. POTASSIUM CITRATE. [Suspect]
     Active Substance: POTASSIUM CITRATE
     Indication: RENAL TUBULAR ACIDOSIS
     Dosage: 4.4 MEQ/KG/DAY
     Route: 048
  2. NYSTATIN ( NYSTATIN) [Suspect]
     Active Substance: NYSTATIN
     Indication: CANDIDA INFECTION
     Dosage: SWABBED TO EACH SIDE OF MOUTH
     Route: 048
  3. SODIUM CITRATE. [Suspect]
     Active Substance: SODIUM CITRATE
     Indication: RENAL TUBULAR ACIDOSIS
     Dosage: 8.8 MEQ/KG/DAY
     Route: 048

REACTIONS (3)
  - Blood osmolarity increased [Recovered/Resolved]
  - Toxicity to various agents [Recovered/Resolved]
  - Neurotoxicity [Recovered/Resolved]
